FAERS Safety Report 23930114 (Version 1)
Quarter: 2024Q2

REPORT INFORMATION
  Report Type: Spontaneous
  Country: US (occurrence: US)
  Receive Date: 20240601
  Receipt Date: 20240601
  Transmission Date: 20240715
  Serious: No
  Sender: FDA-Public Use
  Company Number: US-AMGEN-HZN-2024-005848

PATIENT
  Age: 11 Year
  Sex: Female

DRUGS (3)
  1. PROCYSBI [Suspect]
     Active Substance: CYSTEAMINE BITARTRATE
     Indication: Cystinosis
     Dosage: 675 MILLIGRAM, BID, (TWO 300 MG PACKETS AND ONE 75 MG PACKET)
     Route: 065
  2. PROCYSBI [Suspect]
     Active Substance: CYSTEAMINE BITARTRATE
     Dosage: 675 MILLIGRAM, BID, (TWO 300 MG PACKETS AND ONE 75 MG PACKET)
     Route: 065
  3. PROCYSBI [Suspect]
     Active Substance: CYSTEAMINE BITARTRATE
     Dosage: 825 MILLIGRAM, BID
     Route: 065

REACTIONS (1)
  - Blood homocysteine increased [Unknown]

NARRATIVE: CASE EVENT DATE: 20240401
